FAERS Safety Report 15128980 (Version 2)
Quarter: 2018Q3

REPORT INFORMATION
  Report Type: Report from Study
  Country: GB (occurrence: GB)
  Receive Date: 20180711
  Receipt Date: 20180731
  Transmission Date: 20181010
  Serious: Yes (Hospitalization)
  Sender: FDA-Public Use
  Company Number: GB-ROCHE-2138404

PATIENT
  Sex: Male

DRUGS (5)
  1. CITALOPRAM [Concomitant]
     Active Substance: CITALOPRAM HYDROBROMIDE
  2. ESBRIET [Suspect]
     Active Substance: PIRFENIDONE
     Indication: IDIOPATHIC PULMONARY FIBROSIS
     Route: 048
     Dates: start: 20170403, end: 20171116
  3. CLOPIDOGREL [Concomitant]
     Active Substance: CLOPIDOGREL BISULFATE
  4. ESBRIET [Suspect]
     Active Substance: PIRFENIDONE
     Route: 048
     Dates: start: 20170426
  5. PREDNISOLONE. [Concomitant]
     Active Substance: PREDNISOLONE

REACTIONS (24)
  - Infection [Unknown]
  - Fatigue [Recovered/Resolved]
  - Dyspnoea [Unknown]
  - Gastric disorder [Unknown]
  - Nausea [Unknown]
  - Feeling hot [Unknown]
  - Dyspnoea [Recovering/Resolving]
  - Sensory disturbance [Unknown]
  - Nasopharyngitis [Unknown]
  - Unevaluable event [Unknown]
  - Malaise [Unknown]
  - Hiatus hernia [Unknown]
  - Lower respiratory tract infection [Unknown]
  - Yawning [Unknown]
  - Dizziness [Unknown]
  - Syncope [Unknown]
  - Hypokinesia [Unknown]
  - Anxiety [Unknown]
  - Cough [Unknown]
  - Lethargy [Unknown]
  - Increased tendency to bruise [Unknown]
  - Skin atrophy [Unknown]
  - Asthenia [Unknown]
  - Eating disorder [Unknown]
